FAERS Safety Report 16103795 (Version 2)
Quarter: 2019Q2

REPORT INFORMATION
  Report Type: Spontaneous
  Country: FI (occurrence: FI)
  Receive Date: 20190322
  Receipt Date: 20190510
  Transmission Date: 20190711
  Serious: Yes (Death, Other)
  Sender: FDA-Public Use
  Company Number: FI-ABBVIE-19K-055-2709239-00

PATIENT
  Age: 68 Year
  Sex: Male

DRUGS (1)
  1. VENCLYXTO [Suspect]
     Active Substance: VENETOCLAX
     Indication: PRODUCT USED FOR UNKNOWN INDICATION
     Route: 048
     Dates: start: 201902, end: 2019

REACTIONS (2)
  - General physical condition abnormal [Fatal]
  - Chronic lymphocytic leukaemia [Fatal]

NARRATIVE: CASE EVENT DATE: 20190207
